FAERS Safety Report 5776523-X (Version None)
Quarter: 2008Q2

REPORT INFORMATION
  Report Type: 
  Country: None (occurrence: None)
  Receive Date: 20080616
  Receipt Date: 20080529
  Transmission Date: 20081010
  Serious: Yes (Other)
  Sender: FDA-Public Use
  Company Number: 2008EU000598

PATIENT
  Age: 33 Year
  Sex: Male
  Weight: 57 kg

DRUGS (10)
  1. PROGRAF [Suspect]
     Indication: RENAL TRANSPLANT
     Dosage: 1.5 MG, UID/QD, ORAL
     Route: 048
     Dates: start: 20010102
  2. CORTICOSTEROIDS) (CORITCOSTEROIDS) [Suspect]
     Indication: RENAL TRANSPLANT
  3. AMLOBETA (AMLODIPINE MESILATE) TABLET [Concomitant]
  4. PRAMIPEXOLE DIHYDROCHLORIDE [Concomitant]
  5. PREDNISOLONE [Concomitant]
  6. ALLOPURINOL [Concomitant]
  7. FUROSEMIDE [Concomitant]
  8. PANTOZAL (PANTOPRAZOLE) [Concomitant]
  9. DEKRISTOL (COLECALCIFEROL) [Concomitant]
  10. DECOSTRIOL (CALCICTRIOL) [Concomitant]

REACTIONS (2)
  - HYPERTROPHY [None]
  - SEBACEOUS GLAND DISORDER [None]
